FAERS Safety Report 5277671-3 (Version None)
Quarter: 2007Q1

REPORT INFORMATION
  Report Type: 
  Country: None (occurrence: None)
  Receive Date: 20061213
  Receipt Date: 20040619
  Transmission Date: 20070707
  Serious: Yes (Hospitalization)
  Sender: FDA-Public Use
  Company Number: 2004UW13431

PATIENT
  Age: 45 Year
  Sex: Male

DRUGS (3)
  1. SEROQUEL [Suspect]
     Indication: POST-TRAUMATIC STRESS DISORDER
  2. SEROQUEL [Suspect]
     Indication: SLEEP DISORDER
  3. ZOLOFT [Concomitant]

REACTIONS (1)
  - DIABETIC KETOACIDOSIS [None]
